FAERS Safety Report 14039146 (Version 1)
Quarter: 2017Q4

REPORT INFORMATION
  Report Type: Report from Study
  Country: None (occurrence: BR)
  Receive Date: 20171004
  Receipt Date: 20171004
  Transmission Date: 20180321
  Serious: Yes (Other)
  Sender: FDA-Public Use
  Company Number: BR-ABBVIE-15P-020-1484389-00

PATIENT
  Age: 38 Year
  Sex: Female

DRUGS (2)
  1. HUMIRA [Suspect]
     Active Substance: ADALIMUMAB
     Indication: ANKYLOSING SPONDYLITIS
     Route: 058
     Dates: start: 20131006, end: 2014
  2. HUMIRA [Suspect]
     Active Substance: ADALIMUMAB
     Route: 058
     Dates: start: 20170920

REACTIONS (20)
  - Gait inability [Recovering/Resolving]
  - Live birth [Unknown]
  - Fatigue [Recovering/Resolving]
  - Cartilage atrophy [Unknown]
  - Arthralgia [Not Recovered/Not Resolved]
  - Bone pain [Recovering/Resolving]
  - Nuclear magnetic resonance imaging abnormal [Unknown]
  - Joint stiffness [Not Recovered/Not Resolved]
  - Decreased appetite [Recovered/Resolved]
  - Arthralgia [Not Recovered/Not Resolved]
  - Exposure during pregnancy [Unknown]
  - Joint swelling [Recovering/Resolving]
  - X-ray abnormal [Unknown]
  - Arthralgia [Recovering/Resolving]
  - Joint swelling [Recovering/Resolving]
  - Dyspnoea [Recovered/Resolved]
  - Back pain [Recovering/Resolving]
  - Joint stiffness [Recovering/Resolving]
  - Tuberculin test positive [Unknown]
  - Blood test abnormal [Unknown]

NARRATIVE: CASE EVENT DATE: 201706
